FAERS Safety Report 9332249 (Version 2)
Quarter: 2013Q4

REPORT INFORMATION
  Report Type: Spontaneous
  Country: US (occurrence: US)
  Receive Date: 20130606
  Receipt Date: 20131002
  Transmission Date: 20140711
  Serious: No
  Sender: FDA-Public Use
  Company Number: US-BIOGENIDEC-2013BI050461

PATIENT
  Age: 31 Year
  Sex: Female

DRUGS (2)
  1. TYSABRI [Suspect]
     Indication: MULTIPLE SCLEROSIS
     Route: 042
     Dates: start: 20130207
  2. BENADRYL [Concomitant]
     Indication: PROPHYLAXIS
     Dates: start: 2013

REACTIONS (2)
  - Neutralising antibodies positive [Unknown]
  - Urticaria [Recovered/Resolved]
